FAERS Safety Report 22142145 (Version 1)
Quarter: 2023Q1

REPORT INFORMATION
  Report Type: Spontaneous
  Country: FR (occurrence: FR)
  Receive Date: 20230327
  Receipt Date: 20230327
  Transmission Date: 20230417
  Serious: Yes (Congenital Anomaly)
  Sender: FDA-Public Use
  Company Number: FR-PHARMAAND-2023PHR00027

PATIENT

DRUGS (1)
  1. PEGASYS [Suspect]
     Active Substance: PEGINTERFERON ALFA-2A
     Indication: Foetal exposure during pregnancy
     Dosage: 45 ?G
     Route: 064
     Dates: start: 20221027

REACTIONS (1)
  - Pulmonary sequestration [Not Recovered/Not Resolved]

NARRATIVE: CASE EVENT DATE: 20221128
